FAERS Safety Report 23899699 (Version 1)
Quarter: 2024Q2

REPORT INFORMATION
  Report Type: Spontaneous
  Country: US (occurrence: None)
  Receive Date: 20240526
  Receipt Date: 20240526
  Transmission Date: 20240716
  Serious: No
  Sender: FDA-Public Use
  Company Number: US-ROCHE-3456883

PATIENT
  Age: 60 Year
  Sex: Female
  Weight: 74.91 kg

DRUGS (6)
  1. ACTEMRA [Suspect]
     Active Substance: TOCILIZUMAB
     Indication: Rheumatoid arthritis
     Route: 058
     Dates: start: 20230101
  2. ACTEMRA [Suspect]
     Active Substance: TOCILIZUMAB
  3. ACTEMRA [Suspect]
     Active Substance: TOCILIZUMAB
     Route: 058
     Dates: start: 2023, end: 2023
  4. ACTEMRA [Suspect]
     Active Substance: TOCILIZUMAB
  5. ACTEMRA [Suspect]
     Active Substance: TOCILIZUMAB
     Dosage: STRENGTH: 162 MG/0.9 M
     Route: 058
     Dates: start: 202401
  6. ACTEMRA [Suspect]
     Active Substance: TOCILIZUMAB

REACTIONS (11)
  - Exposure via skin contact [Unknown]
  - Medical device pain [Not Recovered/Not Resolved]
  - Product complaint [Unknown]
  - Product communication issue [Unknown]
  - Drug delivery system malfunction [Unknown]
  - Skin haemorrhage [Unknown]
  - Carpal tunnel syndrome [Unknown]
  - Underdose [Unknown]
  - Device defective [Unknown]
  - Product dose omission issue [Unknown]
  - Syringe issue [Unknown]

NARRATIVE: CASE EVENT DATE: 20231110
